FAERS Safety Report 13878072 (Version 2)
Quarter: 2017Q3

REPORT INFORMATION
  Report Type: Spontaneous
  Country: CA (occurrence: CA)
  Receive Date: 20170817
  Receipt Date: 20170829
  Transmission Date: 20171127
  Serious: Yes (Other)
  Sender: FDA-Public Use
  Company Number: CA-BAYER-2017-100629

PATIENT
  Age: 41 Year
  Sex: Female

DRUGS (1)
  1. MIRENA [Suspect]
     Active Substance: LEVONORGESTREL
     Indication: MENORRHAGIA
     Dosage: 20 MCG/24HR, CONT
     Route: 015
     Dates: start: 20170508

REACTIONS (6)
  - Irritability [Recovering/Resolving]
  - Palpitations [Recovering/Resolving]
  - Mood altered [Recovering/Resolving]
  - Arthritis [Not Recovered/Not Resolved]
  - Lupus-like syndrome [Not Recovered/Not Resolved]
  - Dizziness [Recovering/Resolving]

NARRATIVE: CASE EVENT DATE: 20170508
